FAERS Safety Report 8622504-8 (Version None)
Quarter: 2012Q3

REPORT INFORMATION
  Report Type: 
  Country: None (occurrence: None)
  Receive Date: 20120827
  Receipt Date: 20120820
  Transmission Date: 20120928
  Serious: No
  Sender: FDA-Public Use
  Company Number: US-PFIZER INC-2012204670

PATIENT
  Age: 62 Year
  Sex: Male

DRUGS (1)
  1. INLYTA [Suspect]
     Indication: RENAL CANCER
     Dosage: 5 MG, 2X/DAY
     Dates: start: 20120811

REACTIONS (8)
  - DIARRHOEA [None]
  - FEELING ABNORMAL [None]
  - BLOOD PRESSURE INCREASED [None]
  - DECREASED APPETITE [None]
  - MEMORY IMPAIRMENT [None]
  - GLOSSITIS [None]
  - CONFUSIONAL STATE [None]
  - THROAT IRRITATION [None]
